FAERS Safety Report 23862295 (Version 2)
Quarter: 2024Q3

REPORT INFORMATION
  Report Type: Spontaneous
  Country: US (occurrence: US)
  Receive Date: 20240516
  Receipt Date: 20240717
  Transmission Date: 20241017
  Serious: No
  Sender: PFIZER
  Company Number: US-PFIZER INC-202400108385

PATIENT
  Age: 57 Year
  Sex: Male

DRUGS (2)
  1. TESTOSTERONE CYPIONATE [Suspect]
     Active Substance: TESTOSTERONE CYPIONATE
     Indication: Hormone replacement therapy
     Dosage: 200 MG PER ML SINGLE DOSE 1ML VIALS
     Dates: start: 2023
  2. TESTOSTERONE CYPIONATE [Suspect]
     Active Substance: TESTOSTERONE CYPIONATE
     Dosage: UNK

REACTIONS (4)
  - Liquid product physical issue [Unknown]
  - Poor quality product administered [Unknown]
  - Skin lesion [Unknown]
  - Acne [Unknown]

NARRATIVE: CASE EVENT DATE: 20240429
